FAERS Safety Report 13044654 (Version 1)
Quarter: 2016Q4

REPORT INFORMATION
  Report Type: Spontaneous
  Country: US (occurrence: US)
  Receive Date: 20161220
  Receipt Date: 20161220
  Transmission Date: 20170207
  Serious: No
  Sender: FDA-Public Use
  Company Number: US-ROCHE-1038378

PATIENT
  Age: 50 Year
  Sex: Female
  Weight: 108.96 kg

DRUGS (2)
  1. ZOFRAN [Concomitant]
     Active Substance: ONDANSETRON HYDROCHLORIDE
     Indication: NAUSEA
     Route: 048
  2. ZELBORAF [Suspect]
     Active Substance: VEMURAFENIB
     Indication: MALIGNANT MELANOMA
     Route: 048
     Dates: start: 20120117, end: 20120201

REACTIONS (3)
  - Rash [Recovering/Resolving]
  - Vomiting [Unknown]
  - Headache [Unknown]

NARRATIVE: CASE EVENT DATE: 20120131
